FAERS Safety Report 24331361 (Version 1)
Quarter: 2024Q3

REPORT INFORMATION
  Report Type: Report from Study
  Country: ZA (occurrence: None)
  Receive Date: 20240918
  Receipt Date: 20240918
  Transmission Date: 20241016
  Serious: Yes (Hospitalization)
  Sender: ASTRAZENECA
  Company Number: 2024A211380

PATIENT
  Age: 73 Year
  Sex: Female

DRUGS (6)
  1. BUDESONIDE\FORMOTEROL FUMARATE DIHYDRATE [Suspect]
     Active Substance: BUDESONIDE\FORMOTEROL FUMARATE DIHYDRATE
     Indication: Asthma
     Dosage: 4.5 UG/INHAL, 120 DOSE 80/4.5 MCG UNKNOWN
     Route: 055
  2. BUDESONIDE\FORMOTEROL FUMARATE DIHYDRATE [Suspect]
     Active Substance: BUDESONIDE\FORMOTEROL FUMARATE DIHYDRATE
     Indication: Asthma
     Dosage: 80 UG/INHAL, 120 DOSE 80/4.5 MCG UNKNOWN
     Route: 055
  3. ADCO-TALOMIL 20 MG [Concomitant]
     Indication: Psychiatric care
     Route: 048
  4. BISOPROLOL FUMARATE [Concomitant]
     Active Substance: BISOPROLOL FUMARATE
     Indication: Hypertension
     Route: 048
  5. SPIRACTIN 25 MG [Concomitant]
     Indication: Hypertension
     Route: 048
  6. AMTELIP 80/10 MG [Concomitant]
     Indication: Hypertension
     Route: 048

REACTIONS (3)
  - Gastric ulcer [Unknown]
  - Abdominal pain upper [Unknown]
  - Procedural complication [Unknown]
